FAERS Safety Report 18807688 (Version 1)
Quarter: 2021Q1

REPORT INFORMATION
  Report Type: Spontaneous
  Country: US (occurrence: US)
  Receive Date: 20210129
  Receipt Date: 20210129
  Transmission Date: 20210419
  Serious: Yes (Other)
  Sender: FDA-Public Use
  Company Number: US-PFIZER INC-2021065734

PATIENT
  Age: 29 Year
  Sex: Female

DRUGS (1)
  1. MAGNESIUM SULFATE. [Suspect]
     Active Substance: MAGNESIUM SULFATE
     Indication: PRE-ECLAMPSIA
     Dosage: 4 G, THEN FOLLOWED BY 2 G EVERY HOUR FOR 13HOURS (TOTAL 30 MG)
     Route: 042

REACTIONS (1)
  - Osmotic demyelination syndrome [Unknown]
